FAERS Safety Report 7560614-7 (Version None)
Quarter: 2011Q2

REPORT INFORMATION
  Report Type: 
  Country: None (occurrence: None)
  Receive Date: 20110617
  Receipt Date: 20110617
  Transmission Date: 20111010
  Serious: Yes (Hospitalization)
  Sender: FDA-Public Use
  Company Number: None

PATIENT
  Age: 63 Year
  Sex: Male
  Weight: 95.2554 kg

DRUGS (5)
  1. LISINOPRIL [Concomitant]
  2. EMEND [Suspect]
     Indication: PROPHYLAXIS OF NAUSEA AND VOMITING
     Dates: start: 20110609, end: 20110609
  3. CALCIUM CARBONATE -CALCIUM [Concomitant]
  4. ASPIRIN [Concomitant]
  5. ASTORVASTATIN -LIPITOR- [Concomitant]

REACTIONS (5)
  - HYPERHIDROSIS [None]
  - ACUTE MYOCARDIAL INFARCTION [None]
  - RASH GENERALISED [None]
  - CHEST DISCOMFORT [None]
  - CORONARY ARTERY OCCLUSION [None]
